FAERS Safety Report 10150109 (Version 1)
Quarter: 2014Q2

REPORT INFORMATION
  Report Type: Spontaneous
  Country: US (occurrence: US)
  Receive Date: 20140502
  Receipt Date: 20140502
  Transmission Date: 20141212
  Serious: Yes (Death, Other)
  Sender: FDA-Public Use
  Company Number: US-GILEAD-2014-0101519

PATIENT
  Age: 73 Year
  Sex: Female

DRUGS (10)
  1. LETAIRIS [Suspect]
     Indication: PULMONARY HYPERTENSION
     Route: 065
     Dates: start: 20130612, end: 20140409
  2. ATENOLOL [Concomitant]
  3. TORSEMIDE [Concomitant]
  4. ULORIC [Concomitant]
  5. SPIRONOLACTONE [Concomitant]
  6. KCL [Concomitant]
  7. LANTUS [Concomitant]
  8. COUMADIN                           /00014802/ [Concomitant]
  9. NOVOLOG [Concomitant]
  10. COLCRYS [Concomitant]

REACTIONS (1)
  - Death [Fatal]
